FAERS Safety Report 5727174-4 (Version None)
Quarter: 2008Q2

REPORT INFORMATION
  Report Type: 
  Country: None (occurrence: None)
  Receive Date: 20080505
  Receipt Date: 20080430
  Transmission Date: 20081010
  Serious: Yes (Hospitalization, Other)
  Sender: FDA-Public Use
  Company Number: JP-BRISTOL-MYERS SQUIBB COMPANY-14165401

PATIENT
  Age: 48 Year
  Sex: Female

DRUGS (3)
  1. TAXOL [Suspect]
     Indication: GASTRIC CANCER
     Dosage: 2 CYCLES TAKEN SINCE 09-JAN-07
     Route: 041
     Dates: start: 20070307, end: 20070307
  2. CISPLATIN [Suspect]
     Indication: GASTRIC CANCER
     Route: 041
     Dates: start: 20061106, end: 20061106
  3. TS-1 [Concomitant]
     Route: 048
     Dates: start: 20060526

REACTIONS (2)
  - DIARRHOEA [None]
  - PSEUDOMEMBRANOUS COLITIS [None]
